FAERS Safety Report 8186208-0 (Version None)
Quarter: 2012Q1

REPORT INFORMATION
  Report Type: 
  Country: None (occurrence: None)
  Receive Date: 20120306
  Receipt Date: 20120228
  Transmission Date: 20120608
  Serious: No
  Sender: FDA-Public Use
  Company Number: US-PFIZER INC-2012052986

PATIENT
  Sex: Male
  Weight: 83.9 kg

DRUGS (2)
  1. EFFEXOR XR [Suspect]
     Indication: DEPRESSION
     Dosage: 75 MG, 1X/DAY
     Route: 048
     Dates: start: 20060101
  2. EFFEXOR XR [Suspect]
     Dosage: UNK
     Route: 048
     Dates: end: 20120101

REACTIONS (6)
  - WEIGHT FLUCTUATION [None]
  - WITHDRAWAL SYNDROME [None]
  - DIZZINESS [None]
  - ANXIETY [None]
  - DEPRESSION [None]
  - INSOMNIA [None]
